FAERS Safety Report 9226200 (Version 2)
Quarter: 2013Q2

REPORT INFORMATION
  Report Type: Spontaneous
  Country: US (occurrence: US)
  Receive Date: 20130411
  Receipt Date: 20130607
  Transmission Date: 20140414
  Serious: No
  Sender: FDA-Public Use
  Company Number: US-PFIZER INC-2013113980

PATIENT
  Age: 53 Year
  Sex: Female
  Weight: 63.95 kg

DRUGS (3)
  1. LYRICA [Suspect]
     Indication: FIBROMYALGIA
     Dosage: 50 MG, 3X/DAY
     Route: 048
     Dates: start: 20130301, end: 2013
  2. LYRICA [Suspect]
     Dosage: 100 MG, 3X/DAY
     Route: 048
     Dates: start: 2013
  3. HYDROCODONE [Concomitant]
     Indication: PAIN
     Dosage: UNK

REACTIONS (5)
  - Local swelling [Unknown]
  - Joint swelling [Unknown]
  - Weight increased [Unknown]
  - Drug ineffective [Unknown]
  - Intentional drug misuse [Unknown]
